FAERS Safety Report 6801201-5 (Version None)
Quarter: 2010Q2

REPORT INFORMATION
  Report Type: 
  Country: None (occurrence: None)
  Receive Date: 20100629
  Receipt Date: 20100616
  Transmission Date: 20101027
  Serious: Yes (Other)
  Sender: FDA-Public Use
  Company Number: FR-AMGEN-US387614

PATIENT
  Age: 14 Year
  Sex: Male

DRUGS (4)
  1. ETANERCEPT [Suspect]
     Indication: JUVENILE ARTHRITIS
     Dosage: NOT SPECIFIED
  2. SULFASALAZINE [Concomitant]
  3. METHOTREXATE [Concomitant]
  4. NSAID'S [Concomitant]

REACTIONS (1)
  - INFLAMMATORY BOWEL DISEASE [None]
